FAERS Safety Report 6793407-9 (Version None)
Quarter: 2010Q2

REPORT INFORMATION
  Report Type: 
  Country: None (occurrence: None)
  Receive Date: 20100624
  Receipt Date: 20100429
  Transmission Date: 20101027
  Serious: Yes (Other)
  Sender: FDA-Public Use
  Company Number: US-MYLANLABS-2010S1002215

PATIENT
  Age: 51 Year
  Sex: Female

DRUGS (10)
  1. CLOZAPINE [Suspect]
     Indication: SCHIZOPHRENIA
     Dates: start: 20061009, end: 20100322
  2. CLOZAPINE [Suspect]
     Dates: start: 20061009, end: 20100322
  3. TYLENOL [Concomitant]
  4. PYRIDOXINE HCL [Concomitant]
  5. DIPHENOXYLATE HYDROCHLORIDE AND ATROPINE SULFATE TABLETS [Concomitant]
  6. OXYBUTYNIN CHLORIDE [Concomitant]
     Dosage: EXTENDED RELEASE
  7. ZYPREXA [Concomitant]
  8. CITALOPRAM [Concomitant]
  9. LEVOTHYROXINE [Concomitant]
  10. DIVALPROEX SODIUM [Concomitant]

REACTIONS (2)
  - GRANULOCYTOPENIA [None]
  - LEUKOPENIA [None]
